FAERS Safety Report 10416291 (Version 4)
Quarter: 2014Q4

REPORT INFORMATION
  Report Type: Spontaneous
  Country: US (occurrence: US)
  Receive Date: 20140828
  Receipt Date: 20141031
  Transmission Date: 20150528
  Serious: Yes (Hospitalization, Other)
  Sender: FDA-Public Use
  Company Number: US-009507513-2012SP015715

PATIENT
  Sex: Female
  Weight: 52.15 kg

DRUGS (1)
  1. NUVARING [Suspect]
     Active Substance: ETHINYL ESTRADIOL\ETONOGESTREL
     Indication: CONTRACEPTION
     Dosage: UNK
     Route: 067
     Dates: start: 200910, end: 20100319

REACTIONS (5)
  - Cerebrovascular accident [Recovered/Resolved with Sequelae]
  - Tobacco abuse [Unknown]
  - Dyspnoea [Unknown]
  - Throat tightness [Unknown]
  - Rash [Unknown]

NARRATIVE: CASE EVENT DATE: 201003
